FAERS Safety Report 9409353 (Version 1)
Quarter: 2013Q3

REPORT INFORMATION
  Report Type: Spontaneous
  Country: US (occurrence: US)
  Receive Date: 20130719
  Receipt Date: 20130719
  Transmission Date: 20140515
  Serious: No
  Sender: FDA-Public Use
  Company Number: US-PFIZER INC-2013211321

PATIENT
  Age: 40 Year
  Sex: Male
  Weight: 81.63 kg

DRUGS (1)
  1. NEURONTIN [Suspect]
     Indication: DEPRESSION
     Dosage: 1200 MG (2 TABLETS OF 600MG), 1X/DAY
     Dates: start: 201306

REACTIONS (4)
  - Off label use [Unknown]
  - Drug ineffective for unapproved indication [Unknown]
  - Therapeutic response unexpected [Unknown]
  - Product physical issue [Unknown]
